FAERS Safety Report 15451705 (Version 1)
Quarter: 2018Q4

REPORT INFORMATION
  Report Type: Spontaneous
  Country: US (occurrence: US)
  Receive Date: 20181001
  Receipt Date: 20181001
  Transmission Date: 20190204
  Serious: No
  Sender: FDA-Public Use
  Company Number: US-GLAXOSMITHKLINE-US2018GSK172316

PATIENT
  Sex: Female

DRUGS (2)
  1. STERILE WATER [Suspect]
     Active Substance: WATER
     Indication: PRODUCT USED FOR UNKNOWN INDICATION
     Dosage: UNK
     Route: 065
     Dates: start: 201808
  2. NUCALA [Suspect]
     Active Substance: MEPOLIZUMAB
     Indication: ASTHMA
     Dosage: 100 DF, CYC
     Route: 065
     Dates: start: 201808

REACTIONS (5)
  - Dyspnoea [Unknown]
  - Overweight [Unknown]
  - Cough [Unknown]
  - Therapeutic response decreased [Unknown]
  - Wheezing [Unknown]

NARRATIVE: CASE EVENT DATE: 20180910
